FAERS Safety Report 4515855-X (Version None)
Quarter: 2004Q4

REPORT INFORMATION
  Report Type: 
  Country: None (occurrence: None)
  Receive Date: 20041001
  Receipt Date: 20031124
  Transmission Date: 20050328
  Serious: Yes (Disabling)
  Sender: FDA-Public Use
  Company Number: TPA2003A01562

PATIENT
  Age: 50 Year
  Sex: Female
  Weight: 181.8924 kg

DRUGS (6)
  1. ACTOS [Suspect]
     Indication: DIABETES MELLITUS NON-INSULIN-DEPENDENT
     Dosage: 30 MG, 1 IN 1 D, PER ORAL
     Route: 048
     Dates: start: 20020708, end: 20030716
  2. GLUCOPHAGE XR (METFORMIN HYDROCHLORIDE) [Concomitant]
  3. DIOVAN [Concomitant]
  4. LIPITOR [Concomitant]
  5. GLYBURIDE [Concomitant]
  6. WELLBUTRIN [Concomitant]

REACTIONS (1)
  - WEIGHT INCREASED [None]
